FAERS Safety Report 5643041-9 (Version None)
Quarter: 2008Q1

REPORT INFORMATION
  Report Type: 
  Country: None (occurrence: None)
  Receive Date: 20080228
  Receipt Date: 20080220
  Transmission Date: 20080703
  Serious: Yes (Hospitalization, Other)
  Sender: FDA-Public Use
  Company Number: PHRM2008FR00873

PATIENT
  Age: 85 Year
  Sex: Female

DRUGS (16)
  1. NITRODERM [Suspect]
     Dosage: 15 MG/24HOURS
     Route: 062
     Dates: start: 20071101, end: 20080127
  2. DAFALGAN [Concomitant]
     Indication: PAIN
     Dosage: 1000 MG, TID
     Route: 048
     Dates: start: 20060701, end: 20080127
  3. FORLAX [Concomitant]
     Indication: CONSTIPATION
     Dosage: 20 G, QD
     Route: 048
     Dates: start: 20060701, end: 20080127
  4. KARDEGIC [Concomitant]
     Dosage: 75 MG, QD
     Route: 048
     Dates: start: 20060701
  5. ENALAPRIL MALEATE [Suspect]
     Indication: HYPERTENSION
     Dosage: 10 MG, QD
     Route: 048
     Dates: start: 20071101
  6. FUROSEMIDE [Suspect]
     Indication: HYPERTENSION
     Dosage: 125 MG/DAY
     Route: 048
     Dates: start: 20080127
  7. FUROSEMIDE [Suspect]
     Dosage: 20 MG, QD
     Route: 048
     Dates: start: 20060701, end: 20080127
  8. ARICEPT [Suspect]
     Indication: DEMENTIA ALZHEIMER'S TYPE
     Dosage: 10 MG, QD
     Route: 048
     Dates: start: 20060701
  9. BIMATOPROST [Suspect]
     Indication: OPEN ANGLE GLAUCOMA
     Dosage: 1 DRP, QD
     Route: 047
     Dates: start: 20070901
  10. TIMOLOL MALEATE [Suspect]
     Indication: OPEN ANGLE GLAUCOMA
     Dosage: 1 DRP, QD
     Route: 047
     Dates: start: 20070901
  11. ALPRAZOLAM [Concomitant]
     Indication: SLEEP DISORDER
     Dosage: 0.125 MG, QD
     Route: 048
     Dates: start: 20071211, end: 20080126
  12. TRUSOPT [Concomitant]
     Indication: OPEN ANGLE GLAUCOMA
     Dosage: 1 DRP, BID IN EACH EYE
     Route: 047
     Dates: start: 20071001
  13. EUPHYTOSE [Concomitant]
     Indication: SLEEP DISORDER
     Dosage: 3 DF, QD
     Route: 048
     Dates: start: 20070701, end: 20080126
  14. AMARYL [Concomitant]
     Indication: TYPE 2 DIABETES MELLITUS
     Dosage: 1 MG, QD
     Route: 048
     Dates: start: 20060701
  15. ESOMEPRAZOLE MAGNESIUM [Concomitant]
     Indication: ABDOMINAL PAIN UPPER
     Dosage: 20 MG, QD
     Route: 048
     Dates: start: 20060701
  16. RIVOTRIL [Concomitant]
     Indication: SLEEP DISORDER
     Dosage: 2 MG, QD
     Route: 048
     Dates: start: 20060701

REACTIONS (15)
  - ABDOMINAL PAIN [None]
  - ATRIAL FIBRILLATION [None]
  - BLOOD GLUCOSE INCREASED [None]
  - BUNDLE BRANCH BLOCK RIGHT [None]
  - CARDIAC MASSAGE [None]
  - CREATININE RENAL CLEARANCE DECREASED [None]
  - DIARRHOEA [None]
  - DIZZINESS [None]
  - HYPOTENSION [None]
  - LOSS OF CONSCIOUSNESS [None]
  - LOW CARDIAC OUTPUT SYNDROME [None]
  - MALAISE [None]
  - PULMONARY OEDEMA [None]
  - VENTRICULAR EXTRASYSTOLES [None]
  - VENTRICULAR TACHYCARDIA [None]
